FAERS Safety Report 25679079 (Version 1)
Quarter: 2025Q3

REPORT INFORMATION
  Report Type: Report from Study
  Country: US (occurrence: US)
  Receive Date: 20250814
  Receipt Date: 20250814
  Transmission Date: 20251021
  Serious: Yes (Hospitalization)
  Sender: UCB
  Company Number: US-UCBSA-2025045309

PATIENT
  Sex: Female

DRUGS (3)
  1. FINTEPLA [Suspect]
     Active Substance: FENFLURAMINE
     Indication: Lennox-Gastaut syndrome
     Dosage: 6 MILLILITER, 2X/DAY (BID)
     Dates: start: 20250308
  2. FINTEPLA [Suspect]
     Active Substance: FENFLURAMINE
     Dosage: 6 MILLILITER, 2X/DAY (BID)
  3. DILANTIN [Suspect]
     Active Substance: PHENYTOIN
     Indication: Product used for unknown indication

REACTIONS (2)
  - Toxicity to various agents [Not Recovered/Not Resolved]
  - Serum serotonin increased [Not Recovered/Not Resolved]

NARRATIVE: CASE EVENT DATE: 20250101
